FAERS Safety Report 8959530 (Version 1)
Quarter: 2012Q4

REPORT INFORMATION
  Report Type: 
  Country: US (occurrence: US)
  Receive Date: 20121212
  Receipt Date: 20121212
  Transmission Date: 20130627
  Serious: Yes (Other)
  Sender: FDA-Public Use
  Company Number: US-ROCHE-1164976

PATIENT
  Sex: Female

DRUGS (9)
  1. CAPECITABINE [Suspect]
     Indication: BREAST CANCER
     Route: 065
  2. LAPATINIB [Suspect]
     Indication: BRAIN CANCER METASTATIC
     Route: 048
     Dates: start: 200702
  3. VENLAFAXINE HYDROCHLORIDE [Concomitant]
  4. ONDANSETRON HCL [Concomitant]
  5. ESOMEPRAZOLE [Concomitant]
  6. LOMOTIL (UNITED STATES) [Concomitant]
  7. TRASTUZUMAB [Concomitant]
  8. VINORELBINE TARTRATE [Concomitant]
  9. ERYTHROMYCIN [Concomitant]

REACTIONS (8)
  - Nausea [Recovered/Resolved]
  - Breast cancer recurrent [Unknown]
  - Visual acuity reduced [Unknown]
  - Fatigue [Unknown]
  - Vomiting [Unknown]
  - Product quality issue [Unknown]
  - Rash pruritic [Unknown]
  - Blister [Unknown]
